FAERS Safety Report 6175897-8 (Version None)
Quarter: 2009Q2

REPORT INFORMATION
  Report Type: 
  Country: None (occurrence: None)
  Receive Date: 20090501
  Receipt Date: 20090421
  Transmission Date: 20091009
  Serious: Yes (Other)
  Sender: FDA-Public Use
  Company Number: US-PFIZER INC-2009184226

PATIENT
  Sex: Female
  Weight: 53.07 kg

DRUGS (2)
  1. XALATAN [Suspect]
     Indication: GLAUCOMA
     Dosage: UNK
  2. COSOPT [Concomitant]

REACTIONS (1)
  - CATARACT OPERATION [None]
